FAERS Safety Report 15332191 (Version 3)
Quarter: 2019Q1

REPORT INFORMATION
  Report Type: Spontaneous
  Country: US (occurrence: US)
  Receive Date: 20180829
  Receipt Date: 20190306
  Transmission Date: 20190417
  Serious: Yes (Hospitalization, Other)
  Sender: FDA-Public Use
  Company Number: US-JAZZ-JPI-P-018541

PATIENT
  Age: 60 Year
  Sex: Female
  Weight: 100 kg

DRUGS (3)
  1. XYREM [Suspect]
     Active Substance: SODIUM OXYBATE
     Indication: INSOMNIA
     Dosage: 2.25 G, BID
     Route: 048
     Dates: start: 20111127, end: 201111
  2. XYREM [Suspect]
     Active Substance: SODIUM OXYBATE
     Indication: NARCOLEPSY
     Dosage: 3.5 G, BID
     Route: 048
     Dates: start: 201111, end: 201112
  3. XYREM [Suspect]
     Active Substance: SODIUM OXYBATE
     Dosage: 4.5 G, BID
     Route: 048
     Dates: start: 201112

REACTIONS (15)
  - Fall [Recovered/Resolved]
  - Joint injury [Unknown]
  - Foot fracture [Not Recovered/Not Resolved]
  - Lower limb fracture [Unknown]
  - Head titubation [Not Recovered/Not Resolved]
  - Dizziness [Unknown]
  - Weight decreased [Unknown]
  - Vertigo [Not Recovered/Not Resolved]
  - Pain [Unknown]
  - Tremor [Not Recovered/Not Resolved]
  - Ankle fracture [Unknown]
  - Back pain [Not Recovered/Not Resolved]
  - Muscle spasms [Recovering/Resolving]
  - Peripheral swelling [Unknown]
  - Restless legs syndrome [Not Recovered/Not Resolved]

NARRATIVE: CASE EVENT DATE: 201111
